FAERS Safety Report 16148792 (Version 2)
Quarter: 2022Q2

REPORT INFORMATION
  Report Type: Report from Study
  Country: FR (occurrence: FR)
  Receive Date: 20190402
  Receipt Date: 20220518
  Transmission Date: 20220721
  Serious: Yes (Hospitalization)
  Sender: FDA-Public Use
  Company Number: FR-009507513-1902FRA009334

PATIENT
  Age: 39 Year
  Sex: Male
  Weight: 57 kg

DRUGS (15)
  1. LINEZOLID [Suspect]
     Active Substance: LINEZOLID
     Indication: Pneumonia
     Dosage: 600 MG, 2X/DAY
     Dates: start: 20190130, end: 20190213
  2. ZERBAXA [Suspect]
     Active Substance: CEFTOLOZANE SULFATE\TAZOBACTAM SODIUM
     Indication: Pneumonia
     Dosage: 1 DF, 3X/DAY
     Route: 042
     Dates: start: 20190131, end: 20190203
  3. LEVEMIR [Concomitant]
     Active Substance: INSULIN DETEMIR
     Indication: Diabetes mellitus
     Dosage: 5 IU, 1X/DAY
     Route: 058
  4. AZITHROMYCIN [Concomitant]
     Active Substance: AZITHROMYCIN
     Indication: Respiratory tract infection
     Dosage: 250 MG, 1X/DAY
     Route: 048
  5. SPIRIVA [Concomitant]
     Active Substance: TIOTROPIUM BROMIDE MONOHYDRATE
     Indication: Lower respiratory tract congestion
     Dosage: 1 DF, 1X/DAY
  6. PULMOZYME [Concomitant]
     Active Substance: DORNASE ALFA
     Indication: Lower respiratory tract congestion
     Dosage: 2500 IU, DAILY
  7. FERROUS FUMARATE [Concomitant]
     Active Substance: FERROUS FUMARATE
     Indication: Routine health maintenance
     Dosage: 1 TABLET, QD
     Route: 048
  8. ORKAMBI [Concomitant]
     Active Substance: IVACAFTOR\LUMACAFTOR
     Indication: Cystic fibrosis
     Dosage: 400 MG, 2X/DAY
     Route: 048
  9. VFEND [Concomitant]
     Active Substance: VORICONAZOLE
     Indication: Respiratory tract infection
     Dosage: 10 MG, 2X/DAY
     Route: 048
  10. SERETIDE [Concomitant]
     Active Substance: FLUTICASONE PROPIONATE\SALMETEROL XINAFOATE
     Indication: Lower respiratory tract congestion
     Dosage: 2 PUFFS, 2X/DAY
  11. URSODIOL [Concomitant]
     Active Substance: URSODIOL
     Indication: Cholestasis
     Dosage: 3 DF, 2X/DAY
     Route: 048
  12. PANCRELIPASE [Concomitant]
     Active Substance: PANCRELIPASE
     Indication: Pancreatic failure
     Dosage: 10 MG, 1X/DAY
     Route: 048
  13. PREDNISONE [Concomitant]
     Active Substance: PREDNISONE
     Indication: Inflammation
     Dosage: 5 MG, 1X/DAY
     Route: 048
  14. NOVORAPID [Concomitant]
     Active Substance: INSULIN ASPART
     Indication: Diabetes mellitus
     Dosage: 8 X 3/DAY
     Route: 058
  15. COLISTIN [Concomitant]
     Active Substance: COLISTIN
     Indication: Respiratory tract infection
     Dosage: 2 IU, 2X/DAY

REACTIONS (2)
  - Treatment failure [Recovering/Resolving]
  - Pyrexia [Recovering/Resolving]

NARRATIVE: CASE EVENT DATE: 20190203
